FAERS Safety Report 9370033 (Version 2)
Quarter: 2013Q3

REPORT INFORMATION
  Report Type: Report from Study
  Country: US (occurrence: US)
  Receive Date: 20130626
  Receipt Date: 20130702
  Transmission Date: 20140515
  Serious: Yes (Hospitalization)
  Sender: FDA-Public Use
  Company Number: US-ACTELION-A-NJ2013-80989

PATIENT
  Age: 55 Year
  Sex: Female

DRUGS (4)
  1. VENTAVIS [Suspect]
     Indication: PULMONARY ARTERIAL HYPERTENSION
     Dosage: UNK
     Route: 055
  2. VENTAVIS [Suspect]
     Dosage: UNK
     Route: 055
  3. COUMADIN [Concomitant]
  4. ADCIRCA [Concomitant]

REACTIONS (19)
  - Renal failure [Unknown]
  - Hypotension [Unknown]
  - Pneumonia [Unknown]
  - Dyspnoea [Recovering/Resolving]
  - Pain [Unknown]
  - Hypertension [Unknown]
  - Feeling abnormal [Unknown]
  - Musculoskeletal pain [Unknown]
  - Arthralgia [Unknown]
  - Carpal tunnel decompression [Unknown]
  - Fatigue [Unknown]
  - Flushing [Unknown]
  - Back pain [Unknown]
  - Pain in extremity [Unknown]
  - Dizziness [Unknown]
  - Oedema [Unknown]
  - Neck pain [Unknown]
  - Chest pain [Recovering/Resolving]
  - Drug dose omission [Unknown]
